FAERS Safety Report 7673011-0 (Version None)
Quarter: 2011Q3

REPORT INFORMATION
  Report Type: 
  Country: None (occurrence: None)
  Receive Date: 20110809
  Receipt Date: 20110803
  Transmission Date: 20111222
  Serious: Yes (Life-Threatening, Hospitalization)
  Sender: FDA-Public Use
  Company Number: JP-ASTRAZENECA-2011SE23147

PATIENT
  Age: 24116 Day
  Sex: Male

DRUGS (30)
  1. DOXORUBICIN HYDROCHLORIDE [Suspect]
     Dosage: 30 MILLIGRAM/SQ.METER
     Dates: start: 20101014, end: 20101014
  2. OTHER ANTITUMOR AGENTS [Suspect]
     Indication: ADULT T-CELL LYMPHOMA/LEUKAEMIA
     Dosage: 1 MILLIGRAM/KILOGRAM
     Dates: start: 20101008, end: 20101221
  3. CEFAZOLIN SODIUM [Suspect]
     Indication: PROCTITIS
     Dates: start: 20101022, end: 20110217
  4. AMLODIPINE [Suspect]
     Indication: HYPERTENSION
     Route: 048
     Dates: start: 20101008, end: 20110217
  5. PREDNISOLONE [Suspect]
     Indication: ADULT T-CELL LYMPHOMA/LEUKAEMIA
     Dosage: 40 MILLIGRAM/SQ.METER
     Dates: start: 20101007, end: 20101229
  6. CYMERIN [Suspect]
     Indication: ADULT T-CELL LYMPHOMA/LEUKAEMIA
     Dosage: 60 MILLIGRAM/SQ.METER
     Dates: start: 20101014, end: 20101229
  7. METHOTREXATE [Suspect]
     Indication: ADULT T-CELL LYMPHOMA/LEUKAEMIA
     Dates: start: 20101118, end: 20101118
  8. MAGMITT [Suspect]
     Indication: CONSTIPATION
     Route: 048
     Dates: start: 20110107, end: 20110110
  9. CYTARABINE [Suspect]
     Indication: ADULT T-CELL LYMPHOMA/LEUKAEMIA
     Dates: start: 20101118, end: 20101118
  10. PANTOSIN [Suspect]
     Indication: CONSTIPATION
     Route: 048
     Dates: start: 20110107, end: 20110110
  11. DOXORUBICIN HYDROCHLORIDE [Suspect]
     Dosage: 30 MILLIGRAM/SQ.METER
     Dates: start: 20101124, end: 20101124
  12. CYCLOPHOSPHAMIDE [Suspect]
     Indication: ADULT T-CELL LYMPHOMA/LEUKAEMIA
     Dosage: 350 MILLIGRAM/SQ.METER
     Dates: start: 20101007, end: 20101222
  13. FILDESIN [Suspect]
     Indication: ADULT T-CELL LYMPHOMA/LEUKAEMIA
     Dosage: 2.4 MILLIGRAM/SQ.METER
     Dates: start: 20101026, end: 20101208
  14. VANCOMYCIN HYCHLORIDE [Suspect]
     Indication: PNEUMONIA
     Dates: start: 20110107, end: 20110117
  15. DIFLUCAN [Suspect]
     Indication: ANTIFUNGAL PROPHYLAXIS
     Route: 048
     Dates: end: 20110111
  16. ZOVIRAX [Suspect]
     Indication: PROPHYLAXIS
     Route: 048
     Dates: end: 20110128
  17. MEROPENEM [Suspect]
     Indication: PNEUMONIA
     Route: 042
     Dates: start: 20110107, end: 20110124
  18. LANSOPRAZOLE [Suspect]
     Indication: GASTROOESOPHAGEAL REFLUX DISEASE
     Route: 048
     Dates: end: 20110217
  19. DOXORUBICIN HYDROCHLORIDE [Suspect]
     Indication: ADULT T-CELL LYMPHOMA/LEUKAEMIA
     Dosage: 30 MILLIGRAM/SQ.METER
     Dates: start: 20101229, end: 20101229
  20. DOXORUBICIN HYDROCHLORIDE [Suspect]
     Dosage: 40 MILLIGRAM/SQ.METER
     Dates: start: 20101007, end: 20101007
  21. DOXORUBICIN HYDROCHLORIDE [Suspect]
     Dosage: 40 MILLIGRAM/SQ.METER
     Dates: start: 20101116, end: 20101116
  22. DOXORUBICIN HYDROCHLORIDE [Suspect]
     Dosage: 40 MILLIGRAM/SQ.METER
     Dates: start: 20101222, end: 20101222
  23. ONCOVIN [Suspect]
     Indication: ADULT T-CELL LYMPHOMA/LEUKAEMIA
     Dosage: 1 MILLIGRAM/SQ.METER
     Dates: start: 20101007, end: 20101222
  24. ETOPOSIDE [Suspect]
     Indication: ADULT T-CELL LYMPHOMA/LEUKAEMIA
     Dosage: 100 MILLIGRAM/SQ.METER
     Dates: start: 20101026, end: 20101208
  25. PREDNISOLONE [Suspect]
     Indication: ADULT T-CELL LYMPHOMA/LEUKAEMIA
     Dosage: 10 MILLIGRAM/SQ.METER
     Dates: start: 20101118, end: 20101118
  26. LIPIDIL [Suspect]
     Indication: HYPERLIPIDAEMIA
     Route: 048
     Dates: end: 20110126
  27. FENTANYL CITRATE [Suspect]
     Indication: STOMATITIS
     Dates: start: 20110102, end: 20110119
  28. SULFAMETHOXAZOLE [Suspect]
     Indication: ANTIFUNGAL PROPHYLAXIS
     Route: 048
     Dates: end: 20110128
  29. ALLOPURINOL [Suspect]
     Indication: PROPHYLAXIS
     Route: 048
     Dates: end: 20110120
  30. CARBOPLATIN [Suspect]
     Indication: ADULT T-CELL LYMPHOMA/LEUKAEMIA
     Dosage: 250 MILLIGRAM/SQ.METER
     Dates: start: 20101026, end: 20101208

REACTIONS (2)
  - PNEUMONIA [None]
  - INTERSTITIAL LUNG DISEASE [None]
